FAERS Safety Report 7068851-5 (Version None)
Quarter: 2010Q4

REPORT INFORMATION
  Report Type: 
  Country: None (occurrence: None)
  Receive Date: 20101028
  Receipt Date: 20101025
  Transmission Date: 20110411
  Serious: Yes (Other)
  Sender: FDA-Public Use
  Company Number: GB-TEVA-252962ISR

PATIENT
  Sex: Female
  Weight: 2.48 kg

DRUGS (1)
  1. CIPROFLOXACIN [Suspect]
     Indication: SEPSIS
     Route: 042
     Dates: start: 20101012, end: 20101014

REACTIONS (1)
  - BRADYCARDIA [None]
